FAERS Safety Report 10009492 (Version 3)
Quarter: 2014Q1

REPORT INFORMATION
  Report Type: Report from Study
  Country: AU (occurrence: AU)
  Receive Date: 20140313
  Receipt Date: 20140322
  Transmission Date: 20141002
  Serious: Yes (Other)
  Sender: FDA-Public Use
  Company Number: PHHY2014AU030209

PATIENT
  Age: 40 Year
  Sex: Male
  Weight: 110 kg

DRUGS (4)
  1. CLOZARIL [Suspect]
     Dosage: 900 MG, (400 MG AT MORNING, 500 MG AT NIGHT)
  2. ESCITALOPRAM [Concomitant]
     Dosage: 20 MG, QD (20 MG, MANE)
     Route: 048
  3. ARIPIPRAZOLE [Concomitant]
     Dosage: 25 MG, QD (25 MG, MANE)
     Route: 048
  4. ASENAPINE [Concomitant]
     Dosage: 5 MG, BID
     Route: 048

REACTIONS (8)
  - Hallucination, visual [Recovering/Resolving]
  - Gamma-glutamyltransferase increased [Not Recovered/Not Resolved]
  - Globulins decreased [Not Recovered/Not Resolved]
  - Ventricular remodeling [Unknown]
  - Blood urea nitrogen/creatinine ratio decreased [Unknown]
  - Protein total decreased [Unknown]
  - Blood glucose increased [Not Recovered/Not Resolved]
  - Antipsychotic drug level above therapeutic [Unknown]
